FAERS Safety Report 4747623-8 (Version None)
Quarter: 2005Q3

REPORT INFORMATION
  Report Type: 
  Country: None (occurrence: None)
  Receive Date: 20050818
  Receipt Date: 20050131
  Transmission Date: 20060218
  Serious: No
  Sender: FDA-Public Use
  Company Number: US-BRISTOL-MYERS SQUIBB COMPANY-12844940

PATIENT

DRUGS (2)
  1. TEQUIN [Suspect]
     Indication: PREOPERATIVE CARE
     Route: 042
  2. SEVOFLURANE [Interacting]
     Indication: PREOPERATIVE CARE
     Route: 042

REACTIONS (2)
  - DRUG INTERACTION [None]
  - HYPERTENSION [None]
